FAERS Safety Report 18937683 (Version 1)
Quarter: 2021Q1

REPORT INFORMATION
  Report Type: Spontaneous
  Country: US (occurrence: US)
  Receive Date: 20210224
  Receipt Date: 20210224
  Transmission Date: 20210420
  Serious: No
  Sender: FDA-Public Use
  Company Number: US-SUNOVION-2021SUN000494

PATIENT
  Sex: Female

DRUGS (1)
  1. LEVALBUTEROL TARTRATE. [Suspect]
     Active Substance: LEVALBUTEROL TARTRATE
     Dosage: UNK, APPROXIMATELY 2 PUFFS DAILY
     Route: 055
     Dates: start: 20210201

REACTIONS (5)
  - Device issue [Unknown]
  - Dizziness [Unknown]
  - Device malfunction [Unknown]
  - Palpitations [Unknown]
  - Device delivery system issue [Unknown]
